FAERS Safety Report 20802441 (Version 1)
Quarter: 2022Q2

REPORT INFORMATION
  Report Type: Spontaneous
  Country: US (occurrence: None)
  Receive Date: 20220509
  Receipt Date: 20220509
  Transmission Date: 20220721
  Serious: No
  Sender: FDA-Public Use
  Company Number: None

PATIENT
  Age: 61 Year
  Sex: Male

DRUGS (1)
  1. MEGESTROL [Suspect]
     Active Substance: MEGESTROL
     Indication: Deep vein thrombosis
     Dosage: FREQUENCY : DAILY;?
     Route: 048
     Dates: end: 20220329

REACTIONS (5)
  - Nausea [None]
  - Decreased appetite [None]
  - Haemoglobin decreased [None]
  - Tachycardia [None]
  - Deep vein thrombosis [None]

NARRATIVE: CASE EVENT DATE: 20220329
